FAERS Safety Report 4842027-1 (Version None)
Quarter: 2005Q4

REPORT INFORMATION
  Report Type: 
  Country: None (occurrence: None)
  Receive Date: 20051130
  Receipt Date: 20051121
  Transmission Date: 20060501
  Serious: Yes (Disabling)
  Sender: FDA-Public Use
  Company Number: 2005PK02224

PATIENT
  Age: 66 Year
  Sex: Female

DRUGS (9)
  1. BELOC-ZOK [Suspect]
     Dates: start: 20040513, end: 20040628
  2. LEPONEX [Interacting]
     Dates: start: 20040513, end: 20040628
  3. FLUNINOC [Interacting]
     Dates: start: 20040513, end: 20040628
  4. TRUXAL [Interacting]
     Dates: start: 20040513, end: 20040628
  5. CAPTOHEXAL [Interacting]
     Dates: start: 20040513, end: 20040628
  6. GODAMED [Interacting]
     Dates: start: 20040513, end: 20040628
  7. RANITIDINE [Interacting]
     Dates: start: 20040513, end: 20040628
  8. HALDOL DECANOAT [Interacting]
     Dates: start: 20040513, end: 20040628
  9. MYXOFAT [Interacting]
     Dates: start: 20040513, end: 20040628

REACTIONS (2)
  - BRAIN STEM INFARCTION [None]
  - DRUG INTERACTION [None]
